FAERS Safety Report 9129270 (Version 1)
Quarter: 2013Q1

REPORT INFORMATION
  Report Type: Spontaneous
  Country: CA (occurrence: CA)
  Receive Date: 20130228
  Receipt Date: 20130228
  Transmission Date: 20140127
  Serious: Yes (Death, Hospitalization)
  Sender: FDA-Public Use
  Company Number: CA-B.I. PHARMACEUTICALS,INC./RIDGEFIELD-2013-CN-00317CN

PATIENT
  Age: 81 Year
  Sex: Male
  Weight: 73 kg

DRUGS (14)
  1. PRADAX [Suspect]
     Dosage: 220 MG
     Route: 048
  2. CALCIUM CARBONATE [Concomitant]
  3. CHOLECALCIFEROL [Concomitant]
  4. CIPRALEX [Concomitant]
  5. CRESTOR [Concomitant]
  6. ELIGARD [Concomitant]
  7. FENTANYL [Concomitant]
  8. FUROSEMIDE [Concomitant]
  9. GLICLAZIDE MR [Concomitant]
  10. LUMIGAN RC [Concomitant]
  11. METOPROLOL [Concomitant]
  12. PREDNISONE [Concomitant]
  13. SLOW K [Concomitant]
  14. XGEVA [Concomitant]

REACTIONS (5)
  - Haemoglobin decreased [Fatal]
  - Blood creatinine increased [Fatal]
  - Activated partial thromboplastin time prolonged [Fatal]
  - Malaise [Fatal]
  - Troponin I increased [Fatal]
